APPROVED DRUG PRODUCT: MINITRAN
Active Ingredient: NITROGLYCERIN
Strength: 0.2MG/HR
Dosage Form/Route: FILM, EXTENDED RELEASE;TRANSDERMAL
Application: A089772 | Product #001
Applicant: VALEANT PHARMACEUTICALS NORTH AMERICA LLC
Approved: Aug 30, 1996 | RLD: No | RS: No | Type: DISCN